FAERS Safety Report 8193239-3 (Version None)
Quarter: 2012Q1

REPORT INFORMATION
  Report Type: 
  Country: None (occurrence: None)
  Receive Date: 20120308
  Receipt Date: 20111019
  Transmission Date: 20120608
  Serious: Yes (Hospitalization, Other)
  Sender: FDA-Public Use
  Company Number: CH-ROXANE LABORATORIES, INC.-2011-DE-05701GD

PATIENT
  Age: 68 Year
  Sex: Female

DRUGS (18)
  1. METHOTREXATE [Suspect]
     Indication: SERONEGATIVE ARTHRITIS
     Dosage: 1.4286 MG
     Route: 058
  2. ATORVASTATIN [Concomitant]
     Dosage: 20 MG
  3. ADALIMUMAB [Suspect]
     Indication: SERONEGATIVE ARTHRITIS
     Dosage: 2.8571 MG
  4. METFORMIN HYDROCHLORIDE [Suspect]
     Indication: TYPE 2 DIABETES MELLITUS
     Dosage: 1000 MG
  5. MEFENAMIC ACID [Suspect]
     Dosage: 500 MG
  6. METOPROLOL SUCCINATE [Concomitant]
     Dosage: 50 MG
  7. LOSARTAN POTASSIUM [Concomitant]
     Dosage: 100 MG
  8. TORSEMIDE [Suspect]
     Dosage: 30 MG
  9. SITAGLIPTIN [Concomitant]
     Indication: TYPE 2 DIABETES MELLITUS
     Dosage: 100 MG
  10. IBUPROFEN [Suspect]
     Dosage: 800 MG
  11. PREDNISONE TAB [Suspect]
     Indication: CROHN'S DISEASE
  12. METHOTREXATE [Suspect]
     Indication: CROHN'S DISEASE
  13. ADALIMUMAB [Suspect]
     Indication: CROHN'S DISEASE
  14. LEVOTHYROXINE SODIUM [Concomitant]
     Indication: HYPOTHYROIDISM
     Dosage: 75 MG
  15. PREDNISONE TAB [Suspect]
     Indication: SERONEGATIVE ARTHRITIS
     Dosage: 5 NR
  16. ACETYLSALICYLIC ACID SRT [Suspect]
     Dosage: 100 MG
  17. PANTOPRAZOLE [Suspect]
     Dosage: 40 MG
  18. ACETYLCYSTEINE [Concomitant]
     Dosage: 600 MG

REACTIONS (12)
  - PANCYTOPENIA [None]
  - BRONCHOPULMONARY ASPERGILLOSIS [None]
  - MALAISE [None]
  - DRUG INTERACTION [None]
  - MOUTH ULCERATION [None]
  - EPISTAXIS [None]
  - ACUTE PRERENAL FAILURE [None]
  - DYSPHAGIA [None]
  - BACK PAIN [None]
  - RESPIRATORY TRACT INFECTION [None]
  - ATRIAL FIBRILLATION [None]
  - OSTEOMYELITIS ACUTE [None]
